FAERS Safety Report 4837910-7 (Version None)
Quarter: 2005Q4

REPORT INFORMATION
  Report Type: 
  Country: None (occurrence: None)
  Receive Date: 20051123
  Receipt Date: 20051123
  Transmission Date: 20060501
  Serious: No
  Sender: FDA-Public Use
  Company Number: None

PATIENT
  Age: 45 Year
  Sex: Male
  Weight: 127.0072 kg

DRUGS (1)
  1. HUMIRA [Suspect]
     Indication: RHEUMATOID ARTHRITIS
     Dosage: 40 IM Q 2 WKS
     Route: 030

REACTIONS (4)
  - COUGH [None]
  - EXPOSURE TO COMMUNICABLE DISEASE [None]
  - INTERSTITIAL LUNG DISEASE [None]
  - TUBERCULIN TEST POSITIVE [None]
